FAERS Safety Report 25857209 (Version 1)
Quarter: 2025Q3

REPORT INFORMATION
  Report Type: Spontaneous
  Country: GB (occurrence: GB)
  Receive Date: 20250929
  Receipt Date: 20250929
  Transmission Date: 20251021
  Serious: Yes (Other)
  Sender: AUROBINDO
  Company Number: GB-MHRA-MED-202509111655511790-KFCQW

PATIENT
  Age: 60 Year
  Sex: Male
  Weight: 78 kg

DRUGS (2)
  1. BISOPROLOL [Suspect]
     Active Substance: BISOPROLOL
     Indication: Adverse drug reaction
     Route: 065
     Dates: start: 20250831, end: 20250908
  2. ATORVASTATIN [Concomitant]
     Active Substance: ATORVASTATIN
     Indication: Coronary artery disease
     Route: 065
     Dates: start: 20250828

REACTIONS (4)
  - Chest pain [Not Recovered/Not Resolved]
  - Angina pectoris [Unknown]
  - Paraesthesia [Unknown]
  - Dyspnoea [Unknown]

NARRATIVE: CASE EVENT DATE: 20250831
